FAERS Safety Report 6306516-5 (Version None)
Quarter: 2009Q3

REPORT INFORMATION
  Report Type: 
  Country: None (occurrence: None)
  Receive Date: 20090812
  Receipt Date: 20090731
  Transmission Date: 20100115
  Serious: Yes (Hospitalization)
  Sender: FDA-Public Use
  Company Number: CA-WATSON-2009-06208

PATIENT
  Age: 8 Month
  Sex: Male

DRUGS (1)
  1. DEXAMETHASONE ACETATE [Suspect]
     Indication: DEMYELINATING POLYNEUROPATHY
     Dosage: UNK

REACTIONS (2)
  - CRITICAL ILLNESS POLYNEUROPATHY [None]
  - GUILLAIN-BARRE SYNDROME [None]
